FAERS Safety Report 5259449-X (Version None)
Quarter: 2007Q1

REPORT INFORMATION
  Report Type: 
  Country: None (occurrence: None)
  Receive Date: 20070305
  Receipt Date: 20070220
  Transmission Date: 20070707
  Serious: Yes (Other)
  Sender: FDA-Public Use
  Company Number: 011077

PATIENT
  Age: 26 Year
  Sex: Female

DRUGS (2)
  1. CLARAVIS [Suspect]
     Dosage: SEE IMAGE
     Route: 048
     Dates: start: 20060725, end: 20061027
  2. CLARAVIS [Suspect]
     Dosage: SEE IMAGE
     Route: 048
     Dates: start: 20060725, end: 20061027

REACTIONS (2)
  - DRUG EXPOSURE BEFORE PREGNANCY [None]
  - UNINTENDED PREGNANCY [None]
